FAERS Safety Report 17149408 (Version 1)
Quarter: 2019Q4

REPORT INFORMATION
  Report Type: Spontaneous
  Country: JP (occurrence: JP)
  Receive Date: 20191213
  Receipt Date: 20191213
  Transmission Date: 20200122
  Serious: Yes (Hospitalization, Other)
  Sender: FDA-Public Use
  Company Number: JP-ASTELLAS-2019JP028446

PATIENT
  Age: 94 Year
  Sex: Female

DRUGS (2)
  1. VESICARE [Suspect]
     Active Substance: SOLIFENACIN SUCCINATE
     Indication: NEUROGENIC BLADDER
     Dosage: UNK UNK, UNKNOWN FREQ.
     Route: 065
  2. CHOREITO [Concomitant]
     Indication: NEUROGENIC BLADDER
     Dosage: UNK UNK, UNKNOWN FREQ.
     Route: 065

REACTIONS (3)
  - Urinary tract infection bacterial [Unknown]
  - Hyperammonaemia [Recovering/Resolving]
  - Altered state of consciousness [Recovering/Resolving]
